FAERS Safety Report 9501439 (Version 2)
Quarter: 2013Q4

REPORT INFORMATION
  Report Type: Spontaneous
  Country: US (occurrence: US)
  Receive Date: 20130905
  Receipt Date: 20131003
  Transmission Date: 20140711
  Serious: Yes (Other)
  Sender: FDA-Public Use
  Company Number: US-GLAXOSMITHKLINE-A1040256A

PATIENT
  Age: 79 Year
  Sex: Female

DRUGS (5)
  1. COREG CR [Suspect]
     Indication: HYPERTENSION
     Dosage: 40MG PER DAY
     Route: 048
     Dates: start: 20010901
  2. RYTHMOL SR [Suspect]
     Indication: HYPERTENSION
     Dosage: 225MG TWICE PER DAY
     Route: 048
     Dates: start: 20121120
  3. OXYCODONE-ACETAMINOPHEN [Concomitant]
  4. ALPRAZOLAM [Concomitant]
  5. METOCLOPRAMIDE [Concomitant]

REACTIONS (2)
  - Spinal fracture [Unknown]
  - Fall [Unknown]
